FAERS Safety Report 7065736-5 (Version None)
Quarter: 2010Q4

REPORT INFORMATION
  Report Type: 
  Country: None (occurrence: None)
  Receive Date: 20101027
  Receipt Date: 20101015
  Transmission Date: 20110411
  Serious: Yes (Other)
  Sender: FDA-Public Use
  Company Number: PHHY2010BR68814

PATIENT
  Sex: Female

DRUGS (14)
  1. DIOVAN HCT [Suspect]
     Indication: BLOOD PRESSURE
     Dosage: 320/12.5 MG
     Route: 048
     Dates: start: 20090101
  2. VYTORIN [Suspect]
     Dosage: 10/80 MG(1 TABLET ONCE A DAY (AT NIGHT)
     Route: 048
  3. NEXIUM [Suspect]
     Indication: ABDOMINAL DISCOMFORT
     Dosage: 20 MG (1 TABLET IN FASTING)
     Route: 048
     Dates: start: 20100801
  4. SUSTRATE [Suspect]
     Indication: ANGINA PECTORIS
     Dosage: 1 TABLET FOR EVERY 12 HOUR
     Route: 048
     Dates: start: 20100901
  5. METFORMIN HCL [Suspect]
     Indication: DIABETES MELLITUS
     Dosage: 1 TABLET TWICE A DAY (IN THE MORNING AND NIGHT)
     Route: 048
  6. BALCOR [Concomitant]
     Indication: HYPERTENSION
     Dosage: 90 MG (1 TABLET EVERY 12 HOUR)
     Route: 048
     Dates: start: 20080101
  7. VASTAREL [Concomitant]
     Indication: CARDIAC OPERATION
     Dosage: 35 MG (1 TABLET EVERY 12 HOUR)
     Route: 048
  8. MAREVAN [Concomitant]
     Indication: ANTICOAGULANT THERAPY
     Dosage: 5 MG, QD
     Route: 048
     Dates: start: 20080101
  9. SOYFIT [Concomitant]
     Indication: HORMONE REPLACEMENT THERAPY
     Dosage: 125 MG, QD
     Route: 048
     Dates: start: 20080101
  10. OLCADIL [Concomitant]
     Indication: ANXIETY
     Dosage: 1 MG
     Route: 048
  11. PAROXETINE HCL [Concomitant]
     Indication: PANIC DISORDER
     Dosage: 20 MG, QD
     Route: 048
     Dates: start: 20080101
  12. PAROXETINE HCL [Concomitant]
     Indication: DEPRESSION
  13. PAROXETINE HCL [Concomitant]
     Indication: ANXIETY
  14. ASCORBIC ACID [Concomitant]
     Indication: GENERAL PHYSICAL CONDITION
     Dosage: 1 MG, QD
     Route: 048
     Dates: start: 20060101

REACTIONS (5)
  - ABDOMINAL PAIN UPPER [None]
  - BLOOD CHOLESTEROL INCREASED [None]
  - BLOOD TRIGLYCERIDES INCREASED [None]
  - DIABETES MELLITUS [None]
  - NAUSEA [None]
